FAERS Safety Report 18219263 (Version 3)
Quarter: 2022Q2

REPORT INFORMATION
  Report Type: Report from Study
  Country: IN (occurrence: IN)
  Receive Date: 20200901
  Receipt Date: 20220602
  Transmission Date: 20220721
  Serious: Yes (Other)
  Sender: FDA-Public Use
  Company Number: IN-002147023-NVSC2020IN232409

PATIENT

DRUGS (4)
  1. RUXOLITINIB [Suspect]
     Active Substance: RUXOLITINIB
     Indication: Primary myelofibrosis
     Dosage: 15 MG, BID
     Route: 048
     Dates: start: 20200131, end: 20200815
  2. RUXOLITINIB [Suspect]
     Active Substance: RUXOLITINIB
     Dosage: 5 MG, BID
     Route: 048
     Dates: start: 20200816
  3. RUXOLITINIB [Suspect]
     Active Substance: RUXOLITINIB
     Dosage: 5 MG, BID
     Route: 065
     Dates: start: 20220214
  4. RUXOLITINIB [Suspect]
     Active Substance: RUXOLITINIB
     Dosage: 5 MG, BID
     Route: 065
     Dates: start: 20220513

REACTIONS (11)
  - Anaemia [Unknown]
  - Bicytopenia [Not Recovered/Not Resolved]
  - Chronic kidney disease [Recovering/Resolving]
  - COVID-19 [Recovered/Resolved]
  - Blood uric acid increased [Recovering/Resolving]
  - Gout [Unknown]
  - Leukopenia [Unknown]
  - Pain [Unknown]
  - Platelet count decreased [Unknown]
  - Renal impairment [Unknown]
  - Splenomegaly [Unknown]

NARRATIVE: CASE EVENT DATE: 20200201
